FAERS Safety Report 24438311 (Version 1)
Quarter: 2024Q4

REPORT INFORMATION
  Report Type: Spontaneous
  Country: US (occurrence: None)
  Receive Date: 20241014
  Receipt Date: 20241014
  Transmission Date: 20250115
  Serious: No
  Sender: Public
  Company Number: None

PATIENT
  Sex: Male

DRUGS (6)
  1. TEZSPIRE [Suspect]
     Active Substance: TEZEPELUMAB-EKKO
     Indication: Asthma
     Dosage: OTHER FREQUENCY : EVERY 28 DAYS;?
     Route: 058
     Dates: start: 202408
  2. TEZSPIRE [Suspect]
     Active Substance: TEZEPELUMAB-EKKO
     Indication: Asthma
  3. DUPIXENT [Suspect]
     Active Substance: DUPILUMAB
     Indication: Asthma
  4. DUPIXENT [Suspect]
     Active Substance: DUPILUMAB
     Indication: Asthma
  5. CYCLOSPORINE [Concomitant]
     Active Substance: CYCLOSPORINE
  6. SINGULAIR [Concomitant]
     Active Substance: MONTELUKAST SODIUM

REACTIONS (11)
  - Drug ineffective [None]
  - Hypoaesthesia [None]
  - Hypoaesthesia [None]
  - Dyskinesia [None]
  - Parkinson^s disease [None]
  - Cluster headache [None]
  - Panic attack [None]
  - Rash [None]
  - Dermatitis psoriasiform [None]
  - Dry eye [None]
  - Conjunctivitis [None]
